FAERS Safety Report 4912255-5 (Version None)
Quarter: 2006Q1

REPORT INFORMATION
  Report Type: 
  Country: None (occurrence: None)
  Receive Date: 20060215
  Receipt Date: 20051123
  Transmission Date: 20060701
  Serious: No
  Sender: FDA-Public Use
  Company Number: US-GLAXOSMITHKLINE-A0583407A

PATIENT
  Age: 53 Year
  Sex: Female

DRUGS (5)
  1. VALTREX [Suspect]
     Indication: EPSTEIN-BARR VIRUS INFECTION
     Dosage: 1000MG THREE TIMES PER DAY
     Route: 048
     Dates: start: 20050701, end: 20051001
  2. MECLIZINE [Concomitant]
     Dates: start: 19860101
  3. DIAZEPAM [Concomitant]
     Dates: start: 19860101
  4. DETROL LA [Concomitant]
  5. HORMONAL THERAPY [Concomitant]

REACTIONS (3)
  - FEELING ABNORMAL [None]
  - HEADACHE [None]
  - HYPOAESTHESIA [None]
